FAERS Safety Report 21048534 (Version 1)
Quarter: 2022Q3

REPORT INFORMATION
  Report Type: Spontaneous
  Country: US (occurrence: None)
  Receive Date: 20220705
  Receipt Date: 20220705
  Transmission Date: 20221026
  Serious: No
  Sender: FDA-Public Use
  Company Number: None

PATIENT
  Age: 5 Year
  Sex: Male
  Weight: 22.5 kg

DRUGS (5)
  1. SINGULAIR [Suspect]
     Active Substance: MONTELUKAST SODIUM
     Indication: Asthma
     Dosage: FREQUENCY : AT BEDTIME;?
     Route: 048
  2. SYBACORT [Concomitant]
  3. CLARITIN [Concomitant]
     Active Substance: LORATADINE
  4. ALBUTEROL [Concomitant]
  5. MULTI-VITAMIN [Concomitant]
     Active Substance: .ALPHA.-TOCOPHEROL ACETATE, DL-\ASCORBIC ACID\CYANOCOBALAMIN\FLUORIDE ION\FOLIC ACID\NIACIN\PYRIDOXI

REACTIONS (12)
  - Aggression [None]
  - Aggression [None]
  - Screaming [None]
  - Anger [None]
  - Confusional state [None]
  - Feeling abnormal [None]
  - Insomnia [None]
  - Enuresis [None]
  - Incontinence [None]
  - Nightmare [None]
  - Insomnia [None]
  - Therapy interrupted [None]

NARRATIVE: CASE EVENT DATE: 20220201
